FAERS Safety Report 4831253-3 (Version None)
Quarter: 2005Q4

REPORT INFORMATION
  Report Type: 
  Country: None (occurrence: None)
  Receive Date: 20051116
  Receipt Date: 20051108
  Transmission Date: 20060501
  Serious: Yes (Hospitalization)
  Sender: FDA-Public Use
  Company Number: 163-20785-05070431

PATIENT
  Age: 56 Year
  Sex: Female

DRUGS (2)
  1. THALOMID [Suspect]
     Indication: MULTIPLE MYELOMA
     Dosage: 50MG, 2 TABLETS AT BEDTIME, ORAL
     Route: 048
     Dates: start: 20050508, end: 20050728
  2. COUMADIN [Concomitant]

REACTIONS (13)
  - ANAEMIA [None]
  - ASTHENIA [None]
  - BONE LESION [None]
  - CHEST PAIN [None]
  - DYSPNOEA [None]
  - HYPERCOAGULATION [None]
  - HYPOTENSION [None]
  - HYPOTHYROIDISM [None]
  - STERNAL FRACTURE [None]
  - TACHYCARDIA [None]
  - URINARY TRACT INFECTION ENTEROCOCCAL [None]
  - URINARY TRACT INFECTION PSEUDOMONAL [None]
  - UROSEPSIS [None]
